FAERS Safety Report 11948427 (Version 1)
Quarter: 2016Q1

REPORT INFORMATION
  Report Type: Spontaneous
  Country: US (occurrence: None)
  Receive Date: 20160121
  Receipt Date: 20160121
  Transmission Date: 20160526
  Serious: No
  Sender: FDA-Public Use
  Company Number: None

PATIENT
  Age: 55 Year
  Sex: Female
  Weight: 86.2 kg

DRUGS (7)
  1. NORMOSOL-R [Suspect]
     Active Substance: MAGNESIUM CHLORIDE\POTASSIUM CHLORIDE\SODIUM ACETATE ANHYDROUS\SODIUM CHLORIDE\SODIUM GLUCONATE
     Indication: ELECTROLYTE IMBALANCE
     Dosage: NORMOSOL-R ?CONTINUOUS?INTRAVENOUS
     Route: 042
     Dates: start: 20151219
  2. FAMOTIDINE. [Concomitant]
     Active Substance: FAMOTIDINE
  3. FENTANYL 3 MCG/ML + BUPIVACAINE 0.1% PCA [Concomitant]
  4. ENOXAPARIN [Concomitant]
     Active Substance: ENOXAPARIN
  5. OXYCODONE/ACETAMINOPHEN [Concomitant]
     Active Substance: ACETAMINOPHEN\OXYCODONE HYDROCHLORIDE
  6. ONDANSETRON [Concomitant]
     Active Substance: ONDANSETRON
  7. METOCHLOPRAMIDE [Concomitant]
     Active Substance: METOCLOPRAMIDE HYDROCHLORIDE

REACTIONS (3)
  - Wrong drug administered [None]
  - Drug dispensing error [None]
  - Product label on wrong product [None]

NARRATIVE: CASE EVENT DATE: 20151220
